FAERS Safety Report 23911899 (Version 1)
Quarter: 2024Q2

REPORT INFORMATION
  Report Type: Spontaneous
  Country: GB (occurrence: GB)
  Receive Date: 20240528
  Receipt Date: 20240528
  Transmission Date: 20240716
  Serious: Yes (Other)
  Sender: FDA-Public Use
  Company Number: None

PATIENT
  Age: 89 Year
  Sex: Female
  Weight: 62 kg

DRUGS (11)
  1. DOXYCYCLINE [Suspect]
     Active Substance: DOXYCYCLINE\DOXYCYCLINE HYCLATE
     Indication: Product used for unknown indication
     Dosage: QD (TAKE TWO NOW, THEN ONE DAILY FOR 6 DAYS TO TREA)
     Route: 065
     Dates: start: 20240516
  2. AMLODIPINE [Concomitant]
     Active Substance: AMLODIPINE BESYLATE
     Dosage: 1 DOSAGE FORM, QD
     Route: 065
     Dates: start: 20240205
  3. CALCIUM CARBONATE [Concomitant]
     Active Substance: CALCIUM CARBONATE
     Dosage: 1 DOSAGE FORM, BID
     Route: 065
     Dates: start: 20230814
  4. LOSARTAN [Concomitant]
     Active Substance: LOSARTAN
     Dosage: 1 DOSAGE FORM, QD
     Route: 065
     Dates: start: 20231005
  5. Luforbec [Concomitant]
     Dosage: 2 DOSAGE FORM, BID (RINSE MOUTH WITH...)
     Route: 055
     Dates: start: 20230825
  6. OMEPRAZOLE [Concomitant]
     Active Substance: DONEPEZIL HYDROCHLORIDE\OMEPRAZOLE\OMEPRAZOLE MAGNESIUM
     Dosage: 1 DOSAGE FORM, QD
     Route: 065
     Dates: start: 20240205
  7. PREDNISOLONE [Concomitant]
     Active Substance: PREDNISOLONE
     Dosage: 1.5 DOSAGE FORM, UNK
     Route: 065
     Dates: start: 20230814
  8. RIVAROXABAN [Concomitant]
     Active Substance: RIVAROXABAN
     Dosage: 1 DOSAGE FORM, BID
     Route: 065
     Dates: start: 20240517
  9. ALBUTEROL [Concomitant]
     Active Substance: ALBUTEROL
     Dosage: UNK (AS DIRECTED)
     Route: 065
     Dates: start: 20220307
  10. SALIVIX [Concomitant]
     Indication: Dry mouth
     Dosage: UNK (USE AS DIRECTED)
     Route: 065
     Dates: start: 20240516
  11. MORPHINE SULFATE [Concomitant]
     Active Substance: MORPHINE SULFATE
     Dosage: 1 DOSAGE FORM, BID
     Route: 065
     Dates: start: 20230814

REACTIONS (1)
  - Illness [Recovered/Resolved]
